FAERS Safety Report 9116256 (Version 1)
Quarter: 2013Q1

REPORT INFORMATION
  Report Type: Spontaneous
  Country: US (occurrence: US)
  Receive Date: 20130225
  Receipt Date: 20130225
  Transmission Date: 20140127
  Serious: Yes (Life-Threatening)
  Sender: FDA-Public Use
  Company Number: US-SHIONOGI, INC-2013000125

PATIENT
  Age: 15 Year
  Sex: Male

DRUGS (2)
  1. NAPROXEN [Suspect]
     Dosage: UNK
  2. IBUPROFEN [Suspect]
     Dosage: UNK

REACTIONS (3)
  - Suicide attempt [Recovering/Resolving]
  - Shock [Recovering/Resolving]
  - Intentional overdose [Recovering/Resolving]
